FAERS Safety Report 8043547 (Version 6)
Quarter: 2013Q2

REPORT INFORMATION
  Report Type: Spontaneous
  Country: US (occurrence: US)
  Receive Date: 20110719
  Receipt Date: 20130626
  Transmission Date: 20140414
  Serious: Yes (Life-Threatening, Hospitalization, Congenital Anomaly, Other)
  Sender: FDA-Public Use
  Company Number: US-PFIZER INC-2011158624

PATIENT
  Sex: Male
  Weight: 3.3 kg

DRUGS (3)
  1. EFFEXOR XR [Suspect]
     Dosage: 75 MG, 1X/DAY
     Route: 064
     Dates: start: 2010
  2. EFFEXOR [Suspect]
     Indication: DEPRESSION
     Dosage: UNK
     Route: 064
     Dates: start: 2010
  3. EFFEXOR [Suspect]
     Indication: ANXIETY

REACTIONS (14)
  - Maternal exposure timing unspecified [Unknown]
  - Pulmonary artery atresia [Unknown]
  - Hypoplastic right heart syndrome [Unknown]
  - Heart disease congenital [Unknown]
  - Pulmonary valve stenosis [Unknown]
  - Tricuspid valve incompetence [Unknown]
  - Patent ductus arteriosus [Recovered/Resolved]
  - Enterococcal bacteraemia [Recovered/Resolved]
  - Congenital pulmonary valve atresia [Unknown]
  - Gastrooesophageal reflux disease [Recovered/Resolved]
  - Atrial septal defect [Unknown]
  - Chylothorax [Recovered/Resolved]
  - Otitis media [Recovering/Resolving]
  - Atelectasis [Unknown]
